FAERS Safety Report 5703804-8 (Version None)
Quarter: 2008Q2

REPORT INFORMATION
  Report Type: 
  Country: None (occurrence: None)
  Receive Date: 20080414
  Receipt Date: 20080402
  Transmission Date: 20081010
  Serious: Yes (Life-Threatening, Hospitalization)
  Sender: FDA-Public Use
  Company Number: BR-BAYER-200710175LA

PATIENT
  Age: 80 Year
  Sex: Female

DRUGS (4)
  1. AVELOX [Suspect]
     Indication: BRONCHOPNEUMONIA
     Route: 048
     Dates: start: 20071022, end: 20071026
  2. PROLOPA [Concomitant]
     Indication: PARKINSON'S DISEASE
     Route: 048
     Dates: start: 19990101
  3. MANTIDAN [Concomitant]
     Indication: PARKINSON'S DISEASE
     Route: 048
     Dates: start: 19990101
  4. OTHER UNSPECIFIED MEDICATIONS FOR BRONCHOPNEUMONIA [Concomitant]
     Indication: BRONCHOPNEUMONIA
     Route: 065

REACTIONS (10)
  - ABDOMINAL PAIN [None]
  - DIARRHOEA [None]
  - EYE INFECTION [None]
  - INFECTION [None]
  - INFREQUENT BOWEL MOVEMENTS [None]
  - MICTURITION FREQUENCY DECREASED [None]
  - RENAL FAILURE [None]
  - SHOCK [None]
  - THROMBOSIS [None]
  - VISION BLURRED [None]
